FAERS Safety Report 26121546 (Version 1)
Quarter: 2025Q4

REPORT INFORMATION
  Report Type: Report from Study
  Country: US (occurrence: US)
  Receive Date: 20251204
  Receipt Date: 20251204
  Transmission Date: 20260117
  Serious: Yes (Hospitalization)
  Sender: EMD SERONO INC
  Company Number: US-Merck Healthcare KGaA-2025061593

PATIENT
  Age: 42 Year
  Sex: Female

DRUGS (2)
  1. MAVENCLAD [Suspect]
     Active Substance: CLADRIBINE
     Indication: Multiple sclerosis
     Dosage: YEAR ONE THERAPY
  2. NALTREXONE [Concomitant]
     Active Substance: NALTREXONE
     Indication: Prophylaxis

REACTIONS (3)
  - Infection [Unknown]
  - Staphylococcal infection [Unknown]
  - Sepsis [Unknown]
